FAERS Safety Report 10023165 (Version 1)
Quarter: 2014Q1

REPORT INFORMATION
  Report Type: Report from Study
  Country: JP (occurrence: JP)
  Receive Date: 20140320
  Receipt Date: 20140320
  Transmission Date: 20141002
  Serious: Yes (Other)
  Sender: FDA-Public Use
  Company Number: JP-AMGEN-JPNCT2012085312

PATIENT
  Age: 47 Year
  Sex: Female
  Weight: 47 kg

DRUGS (8)
  1. DARBEPOETIN ALFA [Suspect]
     Indication: NEPHROGENIC ANAEMIA
     Dosage: 20 MUG, QD
     Route: 040
     Dates: start: 20110909
  2. ALFAROL [Concomitant]
     Dosage: UNK
     Route: 048
  3. ALLOPURINOL [Concomitant]
     Dosage: UNK
     Route: 048
  4. AMOBAN [Concomitant]
     Dosage: UNK
     Route: 048
  5. FERRUM                             /00023505/ [Concomitant]
     Dosage: UNK
     Route: 048
  6. KREMEZIN [Concomitant]
     Dosage: UNK
     Route: 048
  7. CALTAN [Concomitant]
     Dosage: UNK
     Route: 048
  8. SLOW-K [Concomitant]
     Dosage: UNK
     Route: 048

REACTIONS (2)
  - Tonic convulsion [Recovered/Resolved]
  - Hepatic function abnormal [Recovered/Resolved]
